FAERS Safety Report 8001044-3 (Version None)
Quarter: 2011Q4

REPORT INFORMATION
  Report Type: 
  Country: None (occurrence: None)
  Receive Date: 20111222
  Receipt Date: 20110817
  Transmission Date: 20120403
  Serious: No
  Sender: FDA-Public Use
  Company Number: US-GLAXOSMITHKLINE-A0941363A

PATIENT
  Age: 70 Year
  Sex: Male

DRUGS (3)
  1. ADVAIR DISKUS 100/50 [Concomitant]
  2. FLONASE [Suspect]
     Indication: RHINITIS ALLERGIC
     Dosage: 2SPR PER DAY
     Route: 045
     Dates: start: 20010101, end: 20010101
  3. FLUTICASONE PROPIONATE [Suspect]
     Indication: RHINITIS ALLERGIC
     Dosage: 2SPR PER DAY
     Route: 045
     Dates: start: 20010101, end: 20010101

REACTIONS (1)
  - NASAL DISCOMFORT [None]
